FAERS Safety Report 18308028 (Version 2)
Quarter: 2020Q4

REPORT INFORMATION
  Report Type: Spontaneous
  Country: US (occurrence: US)
  Receive Date: 20200924
  Receipt Date: 20201001
  Transmission Date: 20210113
  Serious: Yes (Other)
  Sender: FDA-Public Use
  Company Number: US-TEVA-2020-US-1829879

PATIENT
  Age: 9 Decade
  Sex: Male

DRUGS (4)
  1. BICALUTAMIDE. [Suspect]
     Active Substance: BICALUTAMIDE
     Dosage: 150 MILLIGRAM DAILY; OVERALL TREATMENT RECEIVED FOR 4 YEARS
     Route: 048
  2. BICALUTAMIDE. [Suspect]
     Active Substance: BICALUTAMIDE
     Indication: MALIGNANT NEOPLASM OF LACRIMAL DUCT
     Dosage: 50 MILLIGRAM DAILY;
     Route: 048
  3. DEGARELIX [Suspect]
     Active Substance: DEGARELIX
     Indication: MALIGNANT NEOPLASM OF LACRIMAL DUCT
     Dosage: LOADING DOSE
     Route: 065
  4. DEGARELIX [Suspect]
     Active Substance: DEGARELIX
     Indication: MALIGNANT NEOPLASM OF LACRIMAL DUCT
     Dosage: OVERALL TREATMENT RECEIVED FOR 4 YEARS
     Route: 065

REACTIONS (3)
  - Loss of libido [Recovering/Resolving]
  - Erectile dysfunction [Recovering/Resolving]
  - Hot flush [Unknown]
